FAERS Safety Report 19730241 (Version 2)
Quarter: 2021Q3

REPORT INFORMATION
  Report Type: Spontaneous
  Country: US (occurrence: US)
  Receive Date: 20210820
  Receipt Date: 20210929
  Transmission Date: 20211014
  Serious: Yes (Other)
  Sender: FDA-Public Use
  Company Number: US-PFIZER INC-2021517051

PATIENT
  Sex: Female

DRUGS (2)
  1. EPLERENONE. [Suspect]
     Active Substance: EPLERENONE
     Indication: HYPERTENSION
     Dosage: 100 MG, 2X/DAY  (TAKE 2 TABLETS IN AM + 2 TABLETS IN PM)
  2. EPLERENONE. [Suspect]
     Active Substance: EPLERENONE
     Indication: HYPOKALAEMIA
     Dosage: LOWER DOSES

REACTIONS (2)
  - Off label use [Unknown]
  - Drug ineffective [Unknown]
